FAERS Safety Report 5661261-4 (Version None)
Quarter: 2008Q1

REPORT INFORMATION
  Report Type: 
  Country: None (occurrence: None)
  Receive Date: 20080312
  Receipt Date: 20080305
  Transmission Date: 20080703
  Serious: Yes (Other)
  Sender: FDA-Public Use
  Company Number: B0510612A

PATIENT
  Sex: Female

DRUGS (2)
  1. FLIXOTIDE [Suspect]
     Dosage: 50UG TWICE PER DAY
     Route: 055
     Dates: start: 20080221
  2. VENTOLIN [Concomitant]
     Dosage: 100UG TWICE PER DAY
     Route: 055
     Dates: start: 20071101

REACTIONS (3)
  - GASTROENTERITIS VIRAL [None]
  - PYREXIA [None]
  - VOMITING [None]
